FAERS Safety Report 10145909 (Version 1)
Quarter: 2014Q2

REPORT INFORMATION
  Report Type: Spontaneous
  Country: US (occurrence: None)
  Receive Date: 20140430
  Receipt Date: 20140430
  Transmission Date: 20141212
  Serious: No
  Sender: FDA-Public Use
  Company Number: None

PATIENT
  Age: 32 Year
  Sex: Male

DRUGS (1)
  1. TEGRETOL XR [Suspect]
     Indication: EPILEPSY
     Dosage: TAKE 3 PO BID.
     Route: 048
     Dates: end: 2010

REACTIONS (2)
  - Product substitution issue [None]
  - Convulsion [None]
